FAERS Safety Report 7748128-2 (Version None)
Quarter: 2011Q3

REPORT INFORMATION
  Report Type: 
  Country: None (occurrence: None)
  Receive Date: 20110913
  Receipt Date: 20110905
  Transmission Date: 20111222
  Serious: Yes (Other)
  Sender: FDA-Public Use
  Company Number: JP-CEPHALON-2011004765

PATIENT
  Age: 77 Year
  Sex: Male
  Weight: 58 kg

DRUGS (10)
  1. RITUXIMAB [Concomitant]
     Dates: start: 20110329, end: 20110628
  2. REBAMIPIDE [Concomitant]
  3. MAGNESIUM OXIDE [Concomitant]
  4. FEXOFENADINE HCL [Concomitant]
  5. ZOLPIDEM TARTRATE [Concomitant]
  6. ACYCLOVIR [Concomitant]
     Dates: start: 20110307
  7. LANSOPRAZOLE [Concomitant]
  8. SULFAMETHOXAZOLE AND TRIMETHOPRIM [Concomitant]
  9. TREANDA [Suspect]
     Indication: MANTLE CELL LYMPHOMA
     Route: 042
     Dates: start: 20110301, end: 20110302
  10. TREANDA [Suspect]
     Route: 042
     Dates: start: 20110330

REACTIONS (5)
  - DIVERTICULITIS INTESTINAL HAEMORRHAGIC [None]
  - LYMPHOCYTE COUNT DECREASED [None]
  - NEUTROPENIA [None]
  - HYPONATRAEMIA [None]
  - PSEUDOMEMBRANOUS COLITIS [None]
